FAERS Safety Report 16076239 (Version 12)
Quarter: 2022Q3

REPORT INFORMATION
  Report Type: Spontaneous
  Country: US (occurrence: US)
  Receive Date: 20190315
  Receipt Date: 20220811
  Transmission Date: 20221027
  Serious: No
  Sender: FDA-Public Use
  Company Number: US-PFIZER INC-2019100613

PATIENT
  Age: 62 Year
  Sex: Female

DRUGS (1)
  1. XELJANZ XR [Suspect]
     Active Substance: TOFACITINIB CITRATE
     Indication: Rheumatoid arthritis
     Dosage: 11 MG, 1X/DAY

REACTIONS (6)
  - Therapeutic response unexpected [Unknown]
  - Dyspnoea [Unknown]
  - Weight increased [Unknown]
  - Rotator cuff syndrome [Unknown]
  - Suspected COVID-19 [Unknown]
  - General physical health deterioration [Unknown]
